FAERS Safety Report 18876996 (Version 4)
Quarter: 2022Q1

REPORT INFORMATION
  Report Type: Report from Study
  Country: JP (occurrence: JP)
  Receive Date: 20210211
  Receipt Date: 20220331
  Transmission Date: 20220424
  Serious: Yes (Hospitalization, Other)
  Sender: FDA-Public Use
  Company Number: JP-CELLTRION INC.-2021JP001557

PATIENT

DRUGS (9)
  1. INFLIXIMAB-DYYB [Suspect]
     Active Substance: INFLIXIMAB-DYYB
     Indication: Colitis ulcerative
     Dosage: 270 MG (WEIGHT: 54.9 KG)
     Route: 041
     Dates: start: 20181115, end: 20181115
  2. INFLIXIMAB-DYYB [Suspect]
     Active Substance: INFLIXIMAB-DYYB
     Dosage: 280 MG (WEIGHT: 55.7 KG)
     Route: 041
     Dates: start: 20190119, end: 20190119
  3. INFLIXIMAB-DYYB [Suspect]
     Active Substance: INFLIXIMAB-DYYB
     Dosage: 280 MG (WEIGHT: 56 KG)
     Route: 041
     Dates: start: 20190313, end: 20190313
  4. INFLIXIMAB-DYYB [Suspect]
     Active Substance: INFLIXIMAB-DYYB
     Dosage: 285 MG (WEIGHT: 57 KG)
     Route: 041
     Dates: start: 20190502, end: 20190502
  5. INFLIXIMAB-DYYB [Suspect]
     Active Substance: INFLIXIMAB-DYYB
     Dosage: 290 MG (WEIGHT: 58 KG)
     Route: 041
     Dates: start: 20191103, end: 20191103
  6. INFLIXIMAB-DYYB [Suspect]
     Active Substance: INFLIXIMAB-DYYB
     Dosage: 285 MG (WEIGHT: 57 KG)
     Route: 041
     Dates: start: 20201115, end: 20201115
  7. INFLIXIMAB-DYYB [Suspect]
     Active Substance: INFLIXIMAB-DYYB
     Dosage: 280 MG (WEIGHT: 55.6 KG)
     Route: 041
     Dates: start: 20211010, end: 20211010
  8. MESALAMINE [Concomitant]
     Active Substance: MESALAMINE
     Dosage: 2400 MG, DAILY
     Route: 048
     Dates: start: 20170513, end: 20200526
  9. MESALAMINE [Concomitant]
     Active Substance: MESALAMINE
     Dosage: 4000 MG, DAILY
     Route: 048
     Dates: start: 20170826, end: 20200708

REACTIONS (9)
  - Tonsillectomy [Recovered/Resolved]
  - Pancreatitis acute [Recovered/Resolved]
  - IgA nephropathy [Not Recovered/Not Resolved]
  - Gastritis [Not Recovered/Not Resolved]
  - Tonsillitis [Recovered/Resolved]
  - Pyrexia [Recovered/Resolved]
  - Off label use [Unknown]
  - Underdose [Unknown]
  - Overdose [Unknown]

NARRATIVE: CASE EVENT DATE: 20200614
